FAERS Safety Report 13470334 (Version 11)
Quarter: 2018Q3

REPORT INFORMATION
  Report Type: Report from Study
  Country: PL (occurrence: PL)
  Receive Date: 20170423
  Receipt Date: 20180927
  Transmission Date: 20181010
  Serious: Yes (Life-Threatening, Hospitalization, Other)
  Sender: FDA-Public Use
  Company Number: PL-UCBSA-2017014937

PATIENT
  Age: 58 Year
  Sex: Female
  Weight: 71 kg

DRUGS (12)
  1. CERTOLIZUMAB PEGOL [Suspect]
     Active Substance: CERTOLIZUMAB PEGOL
     Dosage: 400 MG, EV 2 WEEKS(QOW)
     Route: 058
     Dates: start: 20161026, end: 20170411
  2. POLOCARD [Concomitant]
     Active Substance: ASPIRIN
     Indication: MYOCARDIAL ISCHAEMIA
     Dosage: 75 MG, ONCE DAILY (QD)
     Route: 048
     Dates: start: 20121110
  3. NEBILET [Concomitant]
     Active Substance: NEBIVOLOL
     Indication: MYOCARDIAL ISCHAEMIA
     Dosage: 5 MG, ONCE DAILY (QD)
     Route: 048
     Dates: start: 20121110
  4. LOSACOR [Concomitant]
     Active Substance: LOSARTAN POTASSIUM
     Indication: MYOCARDIAL ISCHAEMIA
     Dosage: 50 MG, ONCE DAILY (QD)
     Route: 048
     Dates: start: 20151110
  5. ATORVASTATIN [Concomitant]
     Active Substance: ATORVASTATIN
     Indication: MYOCARDIAL ISCHAEMIA
     Dosage: 10 MG, ONCE DAILY (QD)
     Route: 048
     Dates: start: 20151110
  6. METOCLOPRAMIDUM [Concomitant]
     Indication: ABDOMINAL PAIN
     Dosage: UNK
     Dates: start: 20170331, end: 20170331
  7. FUROSEMIDUM [Concomitant]
     Active Substance: FUROSEMIDE
     Indication: PRODUCT USED FOR UNKNOWN INDICATION
     Dosage: UNK
     Dates: start: 20170331, end: 20170331
  8. NO?SPA [Concomitant]
     Active Substance: DROTAVERINE HYDROCHLORIDE
     Indication: ABDOMINAL PAIN
     Dosage: UNK
     Dates: start: 20170331, end: 20170331
  9. CERTOLIZUMAB PEGOL [Suspect]
     Active Substance: CERTOLIZUMAB PEGOL
     Indication: PSORIASIS
     Dosage: 200 MG, EV 2 WEEKS(QOW)
     Route: 058
     Dates: start: 20151125, end: 20160315
  10. CERTOLIZUMAB PEGOL [Suspect]
     Active Substance: CERTOLIZUMAB PEGOL
     Dosage: 400 MG, EV 2 WEEKS(QOW)
     Route: 058
     Dates: start: 20161026, end: 20170411
  11. CERTOLIZUMAB PEGOL [Suspect]
     Active Substance: CERTOLIZUMAB PEGOL
     Dosage: 400 MG, EV 2 WEEKS(QOW)
     Route: 058
     Dates: start: 20160316, end: 20161025
  12. CERTOLIZUMAB PEGOL [Suspect]
     Active Substance: CERTOLIZUMAB PEGOL
     Dosage: 400 MG, EV 2 WEEKS(QOW)
     Route: 058
     Dates: start: 20161026, end: 20170411

REACTIONS (4)
  - Acute hepatic failure [Recovered/Resolved]
  - Acute kidney injury [Recovered/Resolved]
  - Inflammation [Recovered/Resolved]
  - Pneumonia [Recovered/Resolved]

NARRATIVE: CASE EVENT DATE: 20170403
